FAERS Safety Report 6752688-8 (Version None)
Quarter: 2010Q2

REPORT INFORMATION
  Report Type: 
  Country: None (occurrence: None)
  Receive Date: 20100601
  Receipt Date: 20100601
  Transmission Date: 20101027
  Serious: Yes (Hospitalization)
  Sender: FDA-Public Use
  Company Number: None

PATIENT
  Age: 57 Year
  Weight: 81.6475 kg

DRUGS (3)
  1. AGGRENOX [Suspect]
     Indication: CEREBROVASCULAR ACCIDENT PROPHYLAXIS
     Dosage: ONE CAPSULE 2 X DAY PO
     Route: 048
     Dates: start: 20070114, end: 20091018
  2. LISINOPRIL [Concomitant]
  3. SIMVASTATIN [Concomitant]

REACTIONS (13)
  - ABASIA [None]
  - BLADDER DISORDER [None]
  - DYSSTASIA [None]
  - EXTRADURAL HAEMATOMA [None]
  - GAIT DISTURBANCE [None]
  - HYPOAESTHESIA [None]
  - INTESTINAL FUNCTIONAL DISORDER [None]
  - MUSCLE CONTRACTURE [None]
  - NERVOUS SYSTEM DISORDER [None]
  - POST PROCEDURAL COMPLICATION [None]
  - SENSORY LOSS [None]
  - SEXUAL DYSFUNCTION [None]
  - SKIN DISCOLOURATION [None]
